FAERS Safety Report 4616304-3 (Version None)
Quarter: 2005Q1

REPORT INFORMATION
  Report Type: 
  Country: None (occurrence: None)
  Receive Date: 20050321
  Receipt Date: 20050310
  Transmission Date: 20050727
  Serious: Yes (Other)
  Sender: FDA-Public Use
  Company Number: 2005-03-0835

PATIENT
  Age: 50 Year
  Sex: Female

DRUGS (6)
  1. PEG-INTRON [Suspect]
     Indication: HEPATITIS C
     Dosage: 96 MCG QW SUBCUTANEOUS
     Route: 058
     Dates: start: 20040911
  2. REBETOL [Suspect]
     Indication: HEPATITIS C
     Dosage: 1000 MG QD ORAL
     Route: 048
     Dates: start: 20040911
  3. CELEBREX [Concomitant]
  4. WELLBUTRIN [Concomitant]
  5. VIVELLE [Concomitant]
  6. NEXIUM [Concomitant]

REACTIONS (1)
  - BREAST CANCER FEMALE [None]
